FAERS Safety Report 9059714 (Version 3)
Quarter: 2013Q3

REPORT INFORMATION
  Report Type: Report from Study
  Country: BR (occurrence: BR)
  Receive Date: 20130211
  Receipt Date: 20130814
  Transmission Date: 20140515
  Serious: Yes (Hospitalization)
  Sender: FDA-Public Use
  Company Number: BR-ABBOTT-13P-020-1047722-00

PATIENT
  Sex: Female
  Weight: 64 kg

DRUGS (3)
  1. HUMIRA [Suspect]
     Indication: RHEUMATOID ARTHRITIS
     Route: 058
     Dates: start: 20120911, end: 201307
  2. TECNOMET [Concomitant]
     Indication: RHEUMATOID ARTHRITIS
     Route: 048
     Dates: start: 201302
  3. ANTIINFLAMMATORY AGENTS [Concomitant]
     Indication: ANTIINFLAMMATORY THERAPY
     Dosage: 2 TABLET DAILY
     Route: 048
     Dates: start: 201212

REACTIONS (2)
  - Unevaluable event [Unknown]
  - Drug ineffective [Unknown]
